FAERS Safety Report 8816418 (Version 1)
Quarter: 2012Q4

REPORT INFORMATION
  Report Type: Spontaneous
  Country: GB (occurrence: None)
  Receive Date: 20120927
  Receipt Date: 20120927
  Transmission Date: 20130627
  Serious: Yes (Other)
  Sender: FDA-Public Use
  Company Number: GER/UKI/12/0025978

PATIENT
  Sex: Male
  Weight: 107.9 kg

DRUGS (2)
  1. CLOPIDOGREL [Suspect]
     Route: 048
     Dates: start: 20120610, end: 20120912
  2. SIMVASTATIN (SIMVASTATIN) [Suspect]
     Route: 048
     Dates: start: 20120610, end: 20120912

REACTIONS (3)
  - Neuropathy peripheral [None]
  - Tinnitus [None]
  - Erectile dysfunction [None]
